FAERS Safety Report 15985073 (Version 1)
Quarter: 2019Q1

REPORT INFORMATION
  Report Type: Spontaneous
  Country: US (occurrence: US)
  Receive Date: 20190125
  Receipt Date: 20190125
  Transmission Date: 20190418
  Serious: No
  Sender: FDA-Public Use
  Company Number: None

PATIENT
  Sex: Female

DRUGS (1)
  1. COPAXONE [Suspect]
     Active Substance: GLATIRAMER ACETATE
     Indication: MULTIPLE SCLEROSIS
     Dosage: ?          OTHER FREQUENCY:1 SYRINGE 3X^S -WK;?
     Route: 058
     Dates: start: 20161031

REACTIONS (6)
  - Chest discomfort [None]
  - Stress [None]
  - Abdominal pain upper [None]
  - Feeling abnormal [None]
  - Anxiety [None]
  - Flushing [None]
